FAERS Safety Report 17375004 (Version 4)
Quarter: 2020Q1

REPORT INFORMATION
  Report Type: Report from Study
  Country: IT (occurrence: IT)
  Receive Date: 20200205
  Receipt Date: 20200227
  Transmission Date: 20200409
  Serious: Yes (Hospitalization)
  Sender: FDA-Public Use
  Company Number: NVSC2020IT022746

PATIENT
  Age: 65 Year
  Sex: Female
  Weight: 65 kg

DRUGS (6)
  1. LYRICA [Concomitant]
     Active Substance: PREGABALIN
     Indication: HYPOAESTHESIA
     Dosage: UNK
     Route: 065
     Dates: start: 201409
  2. LSZ102 [Suspect]
     Active Substance: INVESTIGATIONAL PRODUCT
     Indication: BREAST CANCER
     Dosage: 300 MG, QD
     Route: 048
     Dates: start: 20190322, end: 20200123
  3. ALPELISIB [Suspect]
     Active Substance: ALPELISIB
     Indication: NEOPLASM MALIGNANT
     Dosage: 300 MG, QD
     Route: 048
     Dates: start: 20190322, end: 20200123
  4. AUGMENTIN [Concomitant]
     Active Substance: AMOXICILLIN\CLAVULANATE POTASSIUM
     Indication: LOCALISED INFECTION
     Dosage: UNK
     Route: 065
     Dates: start: 20200121
  5. ENOXAPARIN SODIUM. [Concomitant]
     Active Substance: ENOXAPARIN SODIUM
     Indication: VENOUS THROMBOSIS
     Dosage: UNK
     Route: 065
     Dates: start: 20190701, end: 20190714
  6. PREDNISONE. [Concomitant]
     Active Substance: PREDNISONE
     Indication: LOCALISED INFECTION
     Dosage: UNK
     Route: 065
     Dates: start: 20200121, end: 20200128

REACTIONS (1)
  - Peripheral embolism [Not Recovered/Not Resolved]

NARRATIVE: CASE EVENT DATE: 20200127
